FAERS Safety Report 10396117 (Version 1)
Quarter: 2014Q1

REPORT INFORMATION
  Report Type: Spontaneous
  Country: US (occurrence: None)
  Receive Date: 20130118
  Receipt Date: 20130118
  Transmission Date: 20141002
  Serious: Yes (Hospitalization)
  Sender: FDA-Public Use
  Company Number: A-NJ2011-54812

PATIENT
  Age: 68 Year
  Sex: Female

DRUGS (3)
  1. TRACLEER (BOSENTAN) TABLET [Suspect]
     Indication: PULMONARY ARTERIAL HYPERTENSION
     Route: 048
     Dates: start: 20071203
  2. REVATIO (SILDENAFIL CITRATE) [Concomitant]
  3. CALCIUM CHANNEL BLOCKERS [Concomitant]

REACTIONS (5)
  - Dyspnoea [None]
  - Cardiac flutter [None]
  - Pain in extremity [None]
  - Loss of consciousness [None]
  - Malaise [None]
